FAERS Safety Report 5808783-0 (Version None)
Quarter: 2008Q3

REPORT INFORMATION
  Report Type: 
  Country: None (occurrence: None)
  Receive Date: 20080714
  Receipt Date: 20080707
  Transmission Date: 20090109
  Serious: Yes (Hospitalization, Congenital Anomaly)
  Sender: FDA-Public Use
  Company Number: A0680882A

PATIENT
  Sex: Female
  Weight: 3.8 kg

DRUGS (2)
  1. PAXIL [Suspect]
     Indication: STRESS
     Dosage: 20MG PER DAY
     Dates: start: 19950101, end: 19960101
  2. VITAMIN TAB [Concomitant]

REACTIONS (19)
  - BRONCHIOLITIS [None]
  - CLEFT PALATE [None]
  - DENTAL CARIES [None]
  - DRUG EXPOSURE DURING PREGNANCY [None]
  - EAR INFECTION [None]
  - FAILURE TO THRIVE [None]
  - GASTROOESOPHAGEAL REFLUX DISEASE [None]
  - GRANULOMA [None]
  - MULTIPLE CONGENITAL ABNORMALITIES [None]
  - OBSTRUCTIVE AIRWAYS DISORDER [None]
  - PIERRE ROBIN SYNDROME [None]
  - PNEUMONIA ASPIRATION [None]
  - RESPIRATORY FAILURE [None]
  - RESPIRATORY TRACT INFECTION VIRAL [None]
  - STICKLER'S SYNDROME [None]
  - TOOTH HYPOPLASIA [None]
  - VOCAL CORD DISORDER [None]
  - VOCAL CORD PARESIS [None]
  - WEIGHT DECREASED [None]
